FAERS Safety Report 8618530-5 (Version None)
Quarter: 2012Q3

REPORT INFORMATION
  Report Type: 
  Country: None (occurrence: None)
  Receive Date: 20120810
  Receipt Date: 20120726
  Transmission Date: 20120928
  Serious: Yes (Other)
  Sender: FDA-Public Use
  Company Number: COL_11902_2012

PATIENT
  Sex: Female

DRUGS (12)
  1. COLGATE BSP WHITENING FROSTY MINT STRIPE [Suspect]
     Indication: DENTAL CARIES
     Dosage: (ORAL)
     Route: 048
  2. VITAMINS NOS [Concomitant]
  3. COLGATE BAKING SODA AND PEROXIDE BRISK MINT TOOTHPASTE [Suspect]
     Indication: DENTAL CARIES
     Dosage: (PEA SLICE AMOUNT OF HEAD OF TOOTHBRUSH/BID/ORAL)
     Route: 048
  4. PRAVASTATIN [Concomitant]
  5. CLONAZEPAM [Concomitant]
  6. DENTAL BUS UNSPECIFIED [Suspect]
     Indication: DENTAL CARIES
     Dosage: (ORAL)
     Route: 048
  7. CHLOROPRENE [Concomitant]
  8. LEVOTHYROXINE SODIUM [Concomitant]
  9. COLGATE TOOTHPASTE UNSPECIFIED [Suspect]
     Indication: DENTAL CARIES
     Dosage: (ORAL)
     Route: 048
  10. COLGATE TOTAL CLEAN MINT/ORIGINAL (SODIUM FLUORIDE 0.24 % TRICLOSAN 0. [Suspect]
     Indication: DENTAL CARIES
     Dosage: (1/3 LENGTH OF TOOTHBRUSH/BID/ ORAL)
     Route: 048
  11. CREST TOOTHPASTE [Suspect]
     Indication: PRODUCT USED FOR UNKNOWN INDICATION
     Dosage: (ORAL)
     Route: 048
  12. ANTIVIRALS [Concomitant]

REACTIONS (4)
  - ORAL DISCOMFORT [None]
  - VIITH NERVE PARALYSIS [None]
  - APHTHOUS STOMATITIS [None]
  - MIGRAINE [None]
